FAERS Safety Report 11767455 (Version 1)
Quarter: 2015Q4

REPORT INFORMATION
  Report Type: Report from Study
  Country: CA (occurrence: CA)
  Receive Date: 20151123
  Receipt Date: 20151123
  Transmission Date: 20160304
  Serious: Yes (Other)
  Sender: FDA-Public Use
  Company Number: CA-ROCHE-1215197

PATIENT
  Sex: Female
  Weight: 113.4 kg

DRUGS (20)
  1. ACETAMINOPHEN. [Concomitant]
     Active Substance: ACETAMINOPHEN
     Indication: PREMEDICATION
     Route: 048
     Dates: start: 20121001
  2. DIPHENHYDRAMINE HCL [Concomitant]
     Active Substance: DIPHENHYDRAMINE HYDROCHLORIDE
     Indication: PREMEDICATION
     Route: 048
     Dates: start: 20121001
  3. FLOXAPEN [Concomitant]
     Active Substance: FLUCLOXACILLIN
  4. PLAQUENIL [Concomitant]
     Active Substance: HYDROXYCHLOROQUINE SULFATE
  5. COENZYME Q10 [Concomitant]
     Active Substance: UBIDECARENONE
  6. TRAZODONE [Concomitant]
     Active Substance: TRAZODONE HYDROCHLORIDE
  7. VITAMIN C [Concomitant]
     Active Substance: ASCORBIC ACID
  8. SYNTHROID [Concomitant]
     Active Substance: LEVOTHYROXINE SODIUM
  9. ACIDOPHILUS [Concomitant]
     Active Substance: LACTOBACILLUS ACIDOPHILUS
  10. HYDROCHLOROTHIAZIDE. [Concomitant]
     Active Substance: HYDROCHLOROTHIAZIDE
  11. PREDNISONE. [Suspect]
     Active Substance: PREDNISONE
     Indication: RHEUMATOID ARTHRITIS
     Dosage: LAST DOSE OF PREDNISONE PRIOR TO RHEUMATOID ARTHRITIS FLARE UP: 31/OCT/2013
     Route: 065
     Dates: end: 201308
  12. RABEPRAZOLE [Concomitant]
     Active Substance: RABEPRAZOLE
  13. RITUXAN [Suspect]
     Active Substance: RITUXIMAB
     Indication: RHEUMATOID ARTHRITIS
     Dosage: LAST DOSE OF RITUXIMAB : 30/APR/2013, 28/NOV/2014, 10/JUN/2015
     Route: 042
     Dates: start: 20121001
  14. METFORMIN [Concomitant]
     Active Substance: METFORMIN HYDROCHLORIDE
     Route: 065
  15. ROSUVASTATIN [Concomitant]
     Active Substance: ROSUVASTATIN
  16. FOLIC ACID. [Concomitant]
     Active Substance: FOLIC ACID
  17. HYDROXYCHLOROQUINE [Concomitant]
     Active Substance: HYDROXYCHLOROQUINE
  18. NAPROXEN. [Concomitant]
     Active Substance: NAPROXEN
  19. SULFASALAZINE. [Concomitant]
     Active Substance: SULFASALAZINE
  20. AMITRIPTYLINE [Concomitant]
     Active Substance: AMITRIPTYLINE
     Indication: PAIN

REACTIONS (6)
  - Pain in jaw [Not Recovered/Not Resolved]
  - Rheumatoid arthritis [Recovered/Resolved]
  - Anxiety [Unknown]
  - Headache [Not Recovered/Not Resolved]
  - Eye pain [Not Recovered/Not Resolved]
  - Lymphoma [Unknown]
